FAERS Safety Report 21264362 (Version 1)
Quarter: 2022Q3

REPORT INFORMATION
  Report Type: Spontaneous
  Country: US (occurrence: None)
  Receive Date: 20220826
  Receipt Date: 20220826
  Transmission Date: 20221027
  Serious: Yes (Hospitalization)
  Sender: FDA-Public Use
  Company Number: None

PATIENT
  Age: 68 Year
  Sex: Male
  Weight: 60.8 kg

DRUGS (2)
  1. CISPLATIN [Suspect]
     Active Substance: CISPLATIN
     Dates: end: 20220809
  2. GEMCITABINE HYDROCHLORIDE [Suspect]
     Active Substance: GEMCITABINE HYDROCHLORIDE
     Dates: end: 20220809

REACTIONS (9)
  - Abdominal pain upper [None]
  - Nausea [None]
  - Vomiting [None]
  - Dizziness [None]
  - Rash [None]
  - Urine output decreased [None]
  - Faecaloma [None]
  - Lipase increased [None]
  - Blood creatine increased [None]

NARRATIVE: CASE EVENT DATE: 20220815
